FAERS Safety Report 7089370-6 (Version None)
Quarter: 2010Q4

REPORT INFORMATION
  Report Type: 
  Country: None (occurrence: None)
  Receive Date: 20101108
  Receipt Date: 20101026
  Transmission Date: 20110411
  Serious: Yes (Other)
  Sender: FDA-Public Use
  Company Number: JP-JNJFOC-20100800719

PATIENT
  Age: 80 Year
  Sex: Male

DRUGS (7)
  1. DUROTEP MT [Suspect]
     Indication: BONE SARCOMA
     Route: 062
  2. TAMSULOSIN HYDROCHLORIDE [Concomitant]
     Route: 048
  3. EVIPROSTAT [Concomitant]
     Route: 048
  4. CEFCAPENE PIVOXIL HYDROCHLORIDE [Concomitant]
     Route: 048
  5. PANTETHINE [Concomitant]
     Route: 048
  6. VOLTAREN [Concomitant]
     Route: 054
  7. MILTAX [Concomitant]
     Route: 062

REACTIONS (1)
  - URINARY RETENTION [None]
